FAERS Safety Report 5330623-7 (Version None)
Quarter: 2007Q2

REPORT INFORMATION
  Report Type: 
  Country: None (occurrence: None)
  Receive Date: 20070516
  Receipt Date: 20070508
  Transmission Date: 20071010
  Serious: Yes (Other)
  Sender: FDA-Public Use
  Company Number: OSCN-NO-0705S-0205

PATIENT
  Age: 57 Year
  Sex: Female
  Weight: 91 kg

DRUGS (1)
  1. OMNISCAN [Suspect]
     Indication: DRUG USE FOR UNKNOWN INDICATION
     Dosage: 50 ML, SINGLE DOSE, I.V.
     Route: 042
     Dates: start: 20070306, end: 20070306

REACTIONS (3)
  - HEADACHE [None]
  - STUPOR [None]
  - TREMOR [None]
